FAERS Safety Report 5905982-4 (Version None)
Quarter: 2008Q3

REPORT INFORMATION
  Report Type: 
  Country: None (occurrence: None)
  Receive Date: 20080930
  Receipt Date: 20080925
  Transmission Date: 20090109
  Serious: Yes (Hospitalization)
  Sender: FDA-Public Use
  Company Number: 2008SP007730

PATIENT
  Age: 59 Year
  Sex: Female
  Weight: 52.5 kg

DRUGS (13)
  1. TEMODAL [Suspect]
     Indication: EPENDYMOMA MALIGNANT
     Dosage: 150 MG/M2; QD; PO, 200 MG/M2; QD; PO
     Route: 048
     Dates: start: 20061106, end: 20061110
  2. TEMODAL [Suspect]
     Indication: NEOPLASM RECURRENCE
     Dosage: 150 MG/M2; QD; PO, 200 MG/M2; QD; PO
     Route: 048
     Dates: start: 20061106, end: 20061110
  3. TEMODAL [Suspect]
     Indication: EPENDYMOMA MALIGNANT
     Dosage: 150 MG/M2; QD; PO, 200 MG/M2; QD; PO
     Route: 048
     Dates: start: 20061204, end: 20061208
  4. TEMODAL [Suspect]
     Indication: NEOPLASM RECURRENCE
     Dosage: 150 MG/M2; QD; PO, 200 MG/M2; QD; PO
     Route: 048
     Dates: start: 20061204, end: 20061208
  5. TEMODAL [Suspect]
     Indication: EPENDYMOMA MALIGNANT
     Dosage: 150 MG/M2; QD; PO, 200 MG/M2; QD; PO
     Route: 048
     Dates: start: 20070102, end: 20070105
  6. TEMODAL [Suspect]
     Indication: NEOPLASM RECURRENCE
     Dosage: 150 MG/M2; QD; PO, 200 MG/M2; QD; PO
     Route: 048
     Dates: start: 20070102, end: 20070105
  7. DEPAKENE [Concomitant]
  8. PRIMPERAN TAB [Concomitant]
  9. NAVOBAN [Concomitant]
  10. NAUZELIN [Concomitant]
  11. PHENOBARBITAL TAB [Concomitant]
  12. MAGNESIUM OXIDE [Concomitant]
  13. EXCEGRAN [Concomitant]

REACTIONS (4)
  - ACTIVITIES OF DAILY LIVING IMPAIRED [None]
  - HYDROCEPHALUS [None]
  - NAUSEA [None]
  - NEOPLASM PROGRESSION [None]
